FAERS Safety Report 8022208-9 (Version None)
Quarter: 2012Q1

REPORT INFORMATION
  Report Type: 
  Country: None (occurrence: None)
  Receive Date: 20120104
  Receipt Date: 20111229
  Transmission Date: 20120608
  Serious: Yes (Other)
  Sender: FDA-Public Use
  Company Number: US-BAYER-2011-094504

PATIENT
  Age: 28 Year
  Sex: Female
  Weight: 97.052 kg

DRUGS (2)
  1. DEXTROAMPHETAMINE [Concomitant]
     Indication: ATTENTION DEFICIT/HYPERACTIVITY DISORDER
     Dosage: DAILY DOSE 10 MG
     Route: 048
  2. MIRENA [Suspect]
     Indication: CONTRACEPTION
     Dosage: 20 MCG/24HR, CONT
     Route: 015
     Dates: start: 20080528, end: 20110916

REACTIONS (4)
  - ECTOPIC PREGNANCY WITH INTRAUTERINE DEVICE [None]
  - MENSTRUATION IRREGULAR [None]
  - HYPOMENORRHOEA [None]
  - GENITAL HAEMORRHAGE [None]
